FAERS Safety Report 7522392-7 (Version None)
Quarter: 2011Q2

REPORT INFORMATION
  Report Type: 
  Country: None (occurrence: None)
  Receive Date: 20110603
  Receipt Date: 20110521
  Transmission Date: 20111010
  Serious: Yes (Hospitalization)
  Sender: FDA-Public Use
  Company Number: PHHY2011EC43992

PATIENT
  Sex: Male
  Weight: 60 kg

DRUGS (2)
  1. LOSARTAN POTASSIUM [Concomitant]
     Indication: HYPERTENSION
     Dosage: 50 MG, DAILY
  2. EXELON [Suspect]
     Indication: DEMENTIA ALZHEIMER'S TYPE
     Dosage: 4.6 MG,/5 CM
     Route: 062
     Dates: start: 20110315

REACTIONS (3)
  - GAIT DISTURBANCE [None]
  - SUBDURAL HAEMATOMA [None]
  - CONFUSIONAL STATE [None]
